FAERS Safety Report 13042565 (Version 3)
Quarter: 2017Q1

REPORT INFORMATION
  Report Type: Spontaneous
  Country: JP (occurrence: JP)
  Receive Date: 20161219
  Receipt Date: 20170126
  Transmission Date: 20170428
  Serious: Yes (Death, Hospitalization, Other)
  Sender: FDA-Public Use
  Company Number: JP-PFIZER INC-2016564264

PATIENT
  Age: 40 Year
  Sex: Male

DRUGS (8)
  1. GASCON [Concomitant]
     Active Substance: DIMETHICONE
     Dosage: UNK UNK, DAILY
     Route: 048
     Dates: end: 20161115
  2. MIYA-BM [Concomitant]
     Active Substance: CLOSTRIDIUM BUTYRICUM SPORES STRAIN M-55
     Dosage: 3 G, DAILY
     Route: 048
     Dates: end: 20161115
  3. ZONISAMIDE. [Concomitant]
     Active Substance: ZONISAMIDE
     Dosage: 500 MG, DAILY
     Route: 048
     Dates: end: 20161115
  4. ACETAMINOPHEN. [Concomitant]
     Active Substance: ACETAMINOPHEN
     Route: 048
  5. MEROPENEM. [Concomitant]
     Active Substance: MEROPENEM
     Route: 042
  6. GABAPEN 200MG [Suspect]
     Active Substance: GABAPENTIN
     Indication: EPILEPSY
     Dosage: 400 MG, 3X/DAY
     Route: 048
     Dates: start: 20160107, end: 20161115
  7. INSULIN [Concomitant]
     Active Substance: INSULIN NOS
     Route: 041
  8. GABAPEN 200MG [Suspect]
     Active Substance: GABAPENTIN
     Dosage: UNK
     Route: 048

REACTIONS (7)
  - Vomiting [Unknown]
  - Urinary tract infection [Unknown]
  - Drug level increased [Fatal]
  - Seizure [Unknown]
  - Hyperglycaemia [Unknown]
  - Pyrexia [Unknown]
  - Septic shock [Fatal]

NARRATIVE: CASE EVENT DATE: 20161110
